FAERS Safety Report 8473869-1 (Version None)
Quarter: 2012Q2

REPORT INFORMATION
  Report Type: 
  Country: None (occurrence: None)
  Receive Date: 20120628
  Receipt Date: 20120104
  Transmission Date: 20120825
  Serious: No
  Sender: FDA-Public Use
  Company Number: US-MYLANLABS-2012S1000303

PATIENT
  Sex: Male
  Weight: 104.33 kg

DRUGS (2)
  1. CLOZAPINE [Suspect]
     Route: 048
     Dates: start: 20041204, end: 20050201
  2. CLOZAPINE [Suspect]
     Indication: SCHIZOPHRENIA
     Route: 048
     Dates: start: 20020211, end: 20041123

REACTIONS (4)
  - COPROLALIA [None]
  - AGITATION [None]
  - ABNORMAL BEHAVIOUR [None]
  - COMMUNICATION DISORDER [None]
